FAERS Safety Report 9123367 (Version 1)
Quarter: 2013Q1

REPORT INFORMATION
  Report Type: Spontaneous
  Country: FR (occurrence: FR)
  Receive Date: 20130115
  Receipt Date: 20130115
  Transmission Date: 20140127
  Serious: Yes (Life-Threatening)
  Sender: FDA-Public Use
  Company Number: FR-SANOFI-AVENTIS-2013SA001604

PATIENT
  Age: 75 Year
  Sex: Male

DRUGS (10)
  1. LOVENOX [Suspect]
     Indication: PRODUCT USED FOR UNKNOWN INDICATION
     Route: 058
     Dates: start: 20121026, end: 20121030
  2. CALCIPARINE [Suspect]
     Indication: PRODUCT USED FOR UNKNOWN INDICATION
     Dosage: DOSE: ACCORDING TO APTT
     Route: 058
     Dates: start: 20121019, end: 20121026
  3. CALCIPARINE [Suspect]
     Indication: PRODUCT USED FOR UNKNOWN INDICATION
     Route: 058
     Dates: start: 20121107, end: 20121112
  4. CALCIPARINE [Suspect]
     Indication: PRODUCT USED FOR UNKNOWN INDICATION
     Route: 058
     Dates: start: 20121115, end: 20121121
  5. PREVISCAN [Concomitant]
     Route: 048
     Dates: end: 20121017
  6. FLODIL [Concomitant]
  7. FUROSEMIDE [Concomitant]
  8. DIGOXINE [Concomitant]
  9. OMEPRAZOLE [Concomitant]
  10. TROSPIUM CHLORIDE [Concomitant]

REACTIONS (4)
  - Renal failure acute [Recovering/Resolving]
  - Anaemia [Recovered/Resolved]
  - Abdominal wall haematoma [Recovering/Resolving]
  - Shock haemorrhagic [Recovered/Resolved]
